FAERS Safety Report 21994042 (Version 1)
Quarter: 2023Q1

REPORT INFORMATION
  Report Type: Spontaneous
  Country: US (occurrence: None)
  Receive Date: 20230215
  Receipt Date: 20230215
  Transmission Date: 20230417
  Serious: No
  Sender: FDA-Public Use
  Company Number: 2023A024434

PATIENT
  Sex: Male

DRUGS (3)
  1. LYNPARZA [Suspect]
     Active Substance: OLAPARIB
     Route: 048
  2. VITAMIN D3 [Suspect]
     Active Substance: CHOLECALCIFEROL
  3. ENZALUTAMIDE [Suspect]
     Active Substance: ENZALUTAMIDE

REACTIONS (3)
  - Gastric disorder [Unknown]
  - Nausea [Unknown]
  - Condition aggravated [Unknown]
